FAERS Safety Report 8980215 (Version 2)
Quarter: 2012Q4

REPORT INFORMATION
  Report Type: 
  Country: CO (occurrence: CO)
  Receive Date: 20121221
  Receipt Date: 20121228
  Transmission Date: 20130627
  Serious: Yes (Hospitalization, Other)
  Sender: FDA-Public Use
  Company Number: CO-AMGEN-COLSP2012080983

PATIENT
  Age: 21 Year
  Sex: Male

DRUGS (5)
  1. ENBREL [Suspect]
     Indication: RHEUMATOID ARTHRITIS
     Dosage: 50 mg, weekly
     Route: 058
     Dates: start: 2007, end: 201208
  2. PREDNISOLON                        /00016201/ [Concomitant]
     Indication: RHEUMATOID ARTHRITIS
     Dosage: 5 mg, UNK
     Dates: start: 2007, end: 2009
  3. NAPROXEN [Concomitant]
     Indication: RHEUMATOID ARTHRITIS
     Dosage: 250 mg, UNK
     Dates: start: 2007, end: 2009
  4. METHOTREXATE [Concomitant]
     Indication: RHEUMATOID ARTHRITIS
     Dosage: 2.5 mg, UNK
     Dates: start: 2007, end: 2009
  5. OMEPRAZOL                          /00661201/ [Concomitant]
     Dosage: UNK UNK, UNK
     Route: 065

REACTIONS (4)
  - Smallpox [Recovered/Resolved]
  - Immunosuppression [Unknown]
  - Tuberculosis [Recovered/Resolved]
  - Pneumonia [Recovered/Resolved]
